FAERS Safety Report 4530387-0 (Version None)
Quarter: 2004Q4

REPORT INFORMATION
  Report Type: 
  Country: None (occurrence: None)
  Receive Date: 20041215
  Receipt Date: 20041129
  Transmission Date: 20050328
  Serious: No
  Sender: FDA-Public Use
  Company Number: 02100-JPN-04-0306

PATIENT
  Age: 76 Year
  Sex: Male

DRUGS (7)
  1. CILOSTAZOL [Suspect]
     Indication: CEREBRAL INFARCTION
     Dosage: ONE OF 200 MG OR 81 MG
     Route: 048
  2. ASPIRIN [Suspect]
     Dosage: 81 MG
  3. IBUDILAST [Concomitant]
  4. GLIMEPIRIDE [Concomitant]
  5. PERINDOPRIL [Concomitant]
  6. URAPIDIL [Concomitant]
  7. DIASTASE COMBINED DRUG 1 [Concomitant]

REACTIONS (5)
  - BLOOD GLUCOSE DECREASED [None]
  - BRADYCARDIA [None]
  - SUPRAVENTRICULAR EXTRASYSTOLES [None]
  - VENTRICULAR EXTRASYSTOLES [None]
  - WHITE BLOOD CELL COUNT DECREASED [None]
